FAERS Safety Report 5266655-7 (Version None)
Quarter: 2007Q1

REPORT INFORMATION
  Report Type: 
  Country: None (occurrence: None)
  Receive Date: 20070312
  Receipt Date: 20070228
  Transmission Date: 20070707
  Serious: Yes (Disabling, Other)
  Sender: FDA-Public Use
  Company Number: 200612AGG00542

PATIENT
  Age: 79 Year
  Sex: Female

DRUGS (8)
  1. AGGRASTAT [Suspect]
     Indication: ACUTE MYOCARDIAL INFARCTION
  2. PANTOZOL /01263202/ [Concomitant]
  3. AMITRIPTYLINE HYDROCHLORIDE [Concomitant]
  4. ASPIRIN /0002701/ [Concomitant]
  5. CELECOXIB [Concomitant]
  6. CLOPIDOGREL BISULFATE [Concomitant]
  7. GABAPENTIN [Concomitant]
  8. TRAMADOL HCL [Concomitant]

REACTIONS (1)
  - PERIPHERAL ARTERIAL OCCLUSIVE DISEASE [None]
